FAERS Safety Report 9392677 (Version 1)
Quarter: 2013Q3

REPORT INFORMATION
  Report Type: Spontaneous
  Country: AU (occurrence: AU)
  Receive Date: 20130710
  Receipt Date: 20130710
  Transmission Date: 20140515
  Serious: Yes (Other)
  Sender: FDA-Public Use
  Company Number: PHHY2013AU072382

PATIENT
  Sex: Male

DRUGS (6)
  1. ZOLEDRONIC ACID [Suspect]
  2. PAMIDRONATE [Suspect]
  3. INTERFERON ALFA-2A [Concomitant]
  4. PREDNISOLONE [Concomitant]
  5. THALIDOMIDE [Concomitant]
  6. VALACICLOVIR [Concomitant]

REACTIONS (1)
  - Osteonecrosis of jaw [Unknown]
